FAERS Safety Report 5604337-X (Version None)
Quarter: 2008Q1

REPORT INFORMATION
  Report Type: 
  Country: None (occurrence: None)
  Receive Date: 20080128
  Receipt Date: 20080122
  Transmission Date: 20080703
  Serious: Yes (Hospitalization)
  Sender: FDA-Public Use
  Company Number: B0505104A

PATIENT
  Age: 63 Year
  Sex: Male

DRUGS (12)
  1. CLAMOXYL IV [Suspect]
     Dosage: 18G PER DAY
     Route: 042
     Dates: start: 20071025, end: 20071109
  2. CLAMOXYL [Suspect]
     Route: 048
     Dates: start: 20071110
  3. GENTAMICIN [Suspect]
     Dosage: 180MG PER DAY
     Route: 042
     Dates: start: 20071025, end: 20071104
  4. METHOTREXATE [Suspect]
     Indication: RHEUMATOID ARTHRITIS
     Dosage: 2.5MG WEEKLY
     Route: 048
  5. CORTANCYL [Concomitant]
     Indication: DRUG USE FOR UNKNOWN INDICATION
     Dosage: 1MG PER DAY
     Route: 065
  6. LANZOR 30 [Concomitant]
     Indication: DRUG USE FOR UNKNOWN INDICATION
     Route: 065
  7. SOTALOL HYDROCHLORIDE [Concomitant]
     Indication: DRUG USE FOR UNKNOWN INDICATION
     Route: 065
  8. PLAVIX [Concomitant]
     Indication: DRUG USE FOR UNKNOWN INDICATION
     Route: 065
  9. GLUCOPHAGE [Concomitant]
     Indication: DRUG USE FOR UNKNOWN INDICATION
     Route: 065
  10. FUROSEMIDE [Concomitant]
     Indication: DRUG USE FOR UNKNOWN INDICATION
     Route: 065
  11. FUMAFER [Concomitant]
     Indication: DRUG USE FOR UNKNOWN INDICATION
  12. DAONIL [Concomitant]
     Indication: DRUG USE FOR UNKNOWN INDICATION
     Dosage: 5MG THREE TIMES PER DAY

REACTIONS (2)
  - DRUG INTERACTION [None]
  - PANCYTOPENIA [None]
